FAERS Safety Report 5243888-7 (Version None)
Quarter: 2007Q1

REPORT INFORMATION
  Report Type: 
  Country: None (occurrence: None)
  Receive Date: 20070222
  Receipt Date: 20070207
  Transmission Date: 20070707
  Serious: Yes (Other)
  Sender: FDA-Public Use
  Company Number: PHNU2007DE00831

PATIENT
  Sex: Female

DRUGS (1)
  1. TOBI [Suspect]
     Indication: PSEUDOMONAS INFECTION
     Dosage: 1 DF, BID
     Dates: start: 20061201

REACTIONS (1)
  - THROMBOCYTHAEMIA [None]
